FAERS Safety Report 17542286 (Version 1)
Quarter: 2020Q1

REPORT INFORMATION
  Report Type: Spontaneous
  Country: DE (occurrence: DE)
  Receive Date: 20200313
  Receipt Date: 20200313
  Transmission Date: 20200409
  Serious: Yes (Hospitalization, Other)
  Sender: FDA-Public Use
  Company Number: DE-009507513-1911DEU005615

PATIENT
  Age: 52 Year
  Sex: Female
  Weight: 113 kg

DRUGS (6)
  1. URSODIOL. [Concomitant]
     Active Substance: URSODIOL
     Dosage: 1500 MILLIGRAM, QD
  2. KEYTRUDA [Suspect]
     Active Substance: PEMBROLIZUMAB
     Indication: MALIGNANT MELANOMA
     Dosage: 2 MILLIGRAM/KILOGRAM, Q3W
     Dates: start: 20180222, end: 20180607
  3. BEZAFIBRATE [Concomitant]
     Active Substance: BEZAFIBRATE
     Dosage: 400 MILLIGRAM, QD
  4. KEYTRUDA [Suspect]
     Active Substance: PEMBROLIZUMAB
     Dosage: 2 MILLIGRAM/KILOGRAM, Q3W
     Dates: start: 20180809, end: 20180830
  5. VOCADO [Concomitant]
     Active Substance: AMLODIPINE BESYLATE\OLMESARTAN MEDOXOMIL
     Dosage: 20/5 MILLIGRAM
  6. GLIMEPIRIDE. [Concomitant]
     Active Substance: GLIMEPIRIDE
     Dosage: 1 MILLIGRAM

REACTIONS (3)
  - Lipase increased [Not Recovered/Not Resolved]
  - Lipase increased [Recovered/Resolved]
  - Immune-mediated pancreatitis [Not Recovered/Not Resolved]

NARRATIVE: CASE EVENT DATE: 20180607
